FAERS Safety Report 25087108 (Version 1)
Quarter: 2025Q1

REPORT INFORMATION
  Report Type: Spontaneous
  Country: US (occurrence: US)
  Receive Date: 20250318
  Receipt Date: 20250318
  Transmission Date: 20250409
  Serious: Yes (Life-Threatening, Hospitalization, Other)
  Sender: ALEXION PHARMACEUTICALS
  Company Number: US-AstraZeneca-CH-00827057A

PATIENT
  Weight: 77.11 kg

DRUGS (2)
  1. SEROQUEL XR [Suspect]
     Active Substance: QUETIAPINE FUMARATE
     Indication: Somnolence
     Dosage: 1000 MILLIGRAM, QHS
  2. SEROQUEL XR [Suspect]
     Active Substance: QUETIAPINE FUMARATE
     Indication: Anxiety

REACTIONS (6)
  - Degenerative bone disease [Unknown]
  - Sedation [Unknown]
  - Torticollis [Unknown]
  - Tardive dyskinesia [Unknown]
  - Essential tremor [Unknown]
  - Muscle spasms [Unknown]
